FAERS Safety Report 23607507 (Version 1)
Quarter: 2024Q1

REPORT INFORMATION
  Report Type: Spontaneous
  Country: US (occurrence: US)
  Receive Date: 20240307
  Receipt Date: 20240307
  Transmission Date: 20240410
  Serious: Yes (Other)
  Sender: FDA-Public Use
  Company Number: US-ABBVIE-5660620

PATIENT

DRUGS (1)
  1. BOTOX [Suspect]
     Active Substance: ONABOTULINUMTOXINA
     Indication: Skin wrinkling
     Dosage: TIME INTERVAL: AS NECESSARY
     Route: 065

REACTIONS (15)
  - Botulism [Unknown]
  - Brain fog [Unknown]
  - Dysphagia [Unknown]
  - Dizziness [Unknown]
  - Nausea [Unknown]
  - Eye disorder [Unknown]
  - Aura [Unknown]
  - Cardiac disorder [Unknown]
  - Heart rate decreased [Unknown]
  - Nervous system disorder [Unknown]
  - Heart rate increased [Unknown]
  - Adverse drug reaction [Unknown]
  - Tremor [Unknown]
  - Dyspnoea [Unknown]
  - Speech disorder [Unknown]

NARRATIVE: CASE EVENT DATE: 20240101
